FAERS Safety Report 17606205 (Version 1)
Quarter: 2020Q1

REPORT INFORMATION
  Report Type: Report from Study
  Country: ES (occurrence: ES)
  Receive Date: 20200331
  Receipt Date: 20200331
  Transmission Date: 20200409
  Serious: Yes (Other)
  Sender: FDA-Public Use
  Company Number: ES-TEVA-2020-ES-1212404

PATIENT
  Age: 60 Year
  Sex: Male

DRUGS (3)
  1. NAPROXENO (2002A) [Suspect]
     Active Substance: NAPROXEN
     Indication: BACK PAIN
     Route: 048
     Dates: start: 20191001, end: 20191005
  2. ALOPURINOL (318A) [Concomitant]
     Active Substance: ALLOPURINOL
     Indication: HYPERURICAEMIA
     Dosage: 100 MG
     Route: 048
     Dates: start: 20190701, end: 20191001
  3. CICLOBENZAPRINA HIDROCLORURO (830CH) [Concomitant]
     Indication: BACK PAIN
     Route: 048
     Dates: start: 20191001, end: 20191005

REACTIONS (1)
  - Upper gastrointestinal haemorrhage [Recovered/Resolved]

NARRATIVE: CASE EVENT DATE: 20191008
